FAERS Safety Report 18810079 (Version 5)
Quarter: 2023Q1

REPORT INFORMATION
  Report Type: Spontaneous
  Country: IT (occurrence: IT)
  Receive Date: 20210129
  Receipt Date: 20230227
  Transmission Date: 20230418
  Serious: Yes (Hospitalization)
  Sender: FDA-Public Use
  Company Number: IT-PIAM-20210001

PATIENT
  Age: 7 Year
  Sex: Female

DRUGS (6)
  1. LINEZOLID [Interacting]
     Active Substance: LINEZOLID
     Indication: Meningoencephalitis bacterial
     Dosage: UNK
  2. MOXIFLOXACIN [Interacting]
     Active Substance: MOXIFLOXACIN
     Indication: Meningoencephalitis bacterial
     Dosage: UNK
  3. CYCLOSERINE [Interacting]
     Active Substance: CYCLOSERINE
     Indication: Meningoencephalitis bacterial
     Dosage: UNK
  4. ETHAMBUTOL [Interacting]
     Active Substance: ETHAMBUTOL HYDROCHLORIDE
     Indication: Meningoencephalitis bacterial
  5. AMIKACIN [Interacting]
     Active Substance: AMIKACIN
     Indication: Meningoencephalitis bacterial
  6. ISONIAZID [Suspect]
     Active Substance: ISONIAZID
     Indication: Meningoencephalitis bacterial

REACTIONS (9)
  - Drug interaction [Recovering/Resolving]
  - Neurotoxicity [Recovering/Resolving]
  - Dysdiadochokinesis [Recovering/Resolving]
  - Encephalitis [Recovering/Resolving]
  - Vertigo [Recovering/Resolving]
  - Dysmetria [Recovering/Resolving]
  - Fine motor skill dysfunction [Recovering/Resolving]
  - Ataxia [Recovering/Resolving]
  - Off label use [Unknown]
